FAERS Safety Report 8786151 (Version 2)
Quarter: 2012Q4

REPORT INFORMATION
  Report Type: 
  Country: DE (occurrence: NL)
  Receive Date: 20120914
  Receipt Date: 20121126
  Transmission Date: 20130627
  Serious: Yes (Death)
  Sender: FDA-Public Use
  Company Number: NL-FRI-1000038536

PATIENT
  Age: 72 Year
  Sex: Male

DRUGS (10)
  1. ROFLUMILAST [Suspect]
     Indication: CHRONIC OBSTRUCTIVE PULMONARY DISEASE
     Dosage: 500 mcg
     Route: 048
     Dates: start: 20101021, end: 20120906
  2. CETIRIZINE [Concomitant]
  3. DIAZEPAM [Concomitant]
  4. FORMOTEROL [Concomitant]
  5. FLUTICASONE [Concomitant]
  6. LEVOCETIRIZINE [Concomitant]
  7. PREDNISOLONE [Concomitant]
  8. TIOTROPIUM [Concomitant]
  9. PANTOPRAZOLE [Concomitant]
  10. THEOPHYLLIN [Concomitant]

REACTIONS (1)
  - Neoplasm malignant [Fatal]
